FAERS Safety Report 6808290-2 (Version None)
Quarter: 2010Q2

REPORT INFORMATION
  Report Type: 
  Country: None (occurrence: None)
  Receive Date: 20100629
  Receipt Date: 20090427
  Transmission Date: 20101027
  Serious: No
  Sender: FDA-Public Use
  Company Number: US-PFIZER INC-2009189271

PATIENT
  Sex: Female

DRUGS (1)
  1. ALDACTONE [Suspect]
     Dosage: UNK
     Dates: end: 20081101

REACTIONS (4)
  - DIARRHOEA [None]
  - DRY EYE [None]
  - DRY MOUTH [None]
  - SINUSITIS [None]
